FAERS Safety Report 9227109 (Version 1)
Quarter: 2013Q2

REPORT INFORMATION
  Report Type: Spontaneous
  Country: BR (occurrence: None)
  Receive Date: 20130410
  Receipt Date: 20130410
  Transmission Date: 20140414
  Serious: Yes (Other)
  Sender: FDA-Public Use
  Company Number: DSU-2013-02700

PATIENT
  Age: 68 Year
  Sex: Male
  Weight: 52 kg

DRUGS (4)
  1. OLMETEC HCT [Suspect]
     Indication: PRODUCT USED FOR UNKNOWN INDICATION
     Dosage: , PER ORAL
     Route: 048
  2. SELOZOK (METOPROLOL SUCCINATE)(METOPROLOL SUCCINATE) [Concomitant]
  3. COUMADIN (WARFARIN SODIUM)(WARFARIN SODIUM) [Concomitant]
  4. ADDERA D3(COLECALCIFEROL)(COLECALCIFEROL) [Concomitant]

REACTIONS (1)
  - Blood pressure decreased [None]
